FAERS Safety Report 7491703-3 (Version None)
Quarter: 2011Q2

REPORT INFORMATION
  Report Type: 
  Country: None (occurrence: None)
  Receive Date: 20110519
  Receipt Date: 20110510
  Transmission Date: 20111010
  Serious: Yes (Other)
  Sender: FDA-Public Use
  Company Number: US-ASTRAZENECA-2011SE28097

PATIENT
  Sex: Female

DRUGS (3)
  1. SYMBICORT [Suspect]
     Route: 055
  2. DAILY STEROID INHALER [Concomitant]
  3. ASTHMA CONTROLLER MEDICINE [Concomitant]

REACTIONS (3)
  - DYSPNOEA [None]
  - DRUG DOSE OMISSION [None]
  - ASTHMA [None]
